FAERS Safety Report 5977659-0 (Version None)
Quarter: 2008Q4

REPORT INFORMATION
  Report Type: 
  Country: None (occurrence: None)
  Receive Date: 20081203
  Receipt Date: 20081121
  Transmission Date: 20090506
  Serious: Yes (Death, Hospitalization, Other)
  Sender: FDA-Public Use
  Company Number: GB-ASTRAZENECA-2007GB01683

PATIENT
  Age: 53 Year
  Sex: Male

DRUGS (13)
  1. ACETAMINOPHEN [Suspect]
     Indication: ANALGESIA
     Route: 048
  2. OMEPRAZOLE [Suspect]
     Route: 065
  3. AUGMENTIN '125' [Suspect]
     Indication: INFECTION
  4. AUGMENTIN '125' [Suspect]
     Indication: SEPSIS
  5. GENTAMICIN [Suspect]
     Indication: INFECTION
  6. GENTAMICIN [Suspect]
     Indication: SEPSIS
  7. LEVOFLOXACIN [Suspect]
     Indication: INFECTION
  8. METRONIDAZOLE [Suspect]
     Indication: INFECTION
  9. METRONIDAZOLE [Suspect]
     Indication: SEPSIS
  10. VANCOMYCIN [Suspect]
     Indication: INFECTION
  11. VANCOMYCIN [Suspect]
     Indication: SEPSIS
  12. DICLOFENAC SODIUM [Suspect]
     Indication: ANALGESIA
  13. METOCLOPRAMIDE [Suspect]

REACTIONS (4)
  - AMINOACIDURIA [None]
  - DISORIENTATION [None]
  - METABOLIC ACIDOSIS [None]
  - MYOCARDIAL INFARCTION [None]
